FAERS Safety Report 9843462 (Version 1)
Quarter: 2013Q4

REPORT INFORMATION
  Report Type: Spontaneous
  Country: US (occurrence: None)
  Receive Date: 20131219
  Receipt Date: 20131219
  Transmission Date: 20140711
  Serious: Yes (Other)
  Sender: FDA-Public Use
  Company Number: 163-20785-13081957

PATIENT
  Age: 64 Year
  Sex: Male
  Weight: 69.85 kg

DRUGS (3)
  1. BLOOD PRESSURE MEDICATIONS(ANTIHYPERTENSIVES) [Concomitant]
  2. HIV [Concomitant]
  3. THALOMID (THALIDOMIDE) (100 MILLGRAM, CAPSULES) [Suspect]
     Indication: ANAEMIA
     Route: 048
     Dates: start: 201307

REACTIONS (2)
  - Renal failure [None]
  - Dry skin [None]
